FAERS Safety Report 16780969 (Version 3)
Quarter: 2019Q3

REPORT INFORMATION
  Report Type: Report from Study
  Country: US (occurrence: US)
  Receive Date: 20190906
  Receipt Date: 20190916
  Transmission Date: 20191005
  Serious: Yes (Hospitalization)
  Sender: FDA-Public Use
  Company Number: US-ROCHE-2393247

PATIENT
  Age: 50 Year
  Sex: Female
  Weight: 54.9 kg

DRUGS (14)
  1. BLINDED ATEZOLIZUMAB [Suspect]
     Active Substance: ATEZOLIZUMAB
     Indication: OVARIAN CANCER
     Dosage: DATE OF MOST RECENT DOSE OF BLINDED ATEZOLIZUMAB PRIOR TO AE ONSET: 14/AUG/2019?ON DAY 1 OF EACH 21-
     Route: 042
     Dates: start: 20180509
  2. SYNTHROID [Concomitant]
     Active Substance: LEVOTHYROXINE SODIUM
     Indication: HYPOTHYROIDISM
     Route: 065
     Dates: start: 20190207
  3. VITAMIN D3 [Concomitant]
     Active Substance: CHOLECALCIFEROL
     Route: 065
     Dates: start: 20180320
  4. PACLITAXEL. [Suspect]
     Active Substance: PACLITAXEL
     Indication: OVARIAN CANCER
     Dosage: DATE OF MOST RECENT DOSE (270 MG) OF PACLITAXEL PRIOR TO AE ONSET: 29/AUG/2018?ON DAY 1 OF EACH 21-D
     Route: 042
     Dates: start: 20180509
  5. D-MANNOSE [Concomitant]
     Route: 065
     Dates: start: 20180504
  6. MAGNESIUM MALATE. [Concomitant]
     Active Substance: MAGNESIUM MALATE
     Route: 065
     Dates: start: 20180320
  7. PRINIVIL [Concomitant]
     Active Substance: LISINOPRIL
     Indication: HYPERTENSION
     Route: 065
     Dates: start: 20180530
  8. TURKEY TAIL MUSHROOM [Concomitant]
     Route: 065
     Dates: start: 20180814
  9. VITAMIN C [Concomitant]
     Active Substance: ASCORBIC ACID
     Route: 065
     Dates: start: 20180504
  10. BEVACIZUMAB. [Suspect]
     Active Substance: BEVACIZUMAB
     Indication: OVARIAN CANCER
     Dosage: DATE OF MOST RECENT DOSE (837 MG) OF BEVACIZUMAB PRIOR TO AE ONSET: 06/MAR/2019?AS PER THE SCHEDULE
     Route: 042
     Dates: start: 20180530
  11. ELIQUIS [Concomitant]
     Active Substance: APIXABAN
     Indication: VENA CAVA THROMBOSIS
     Route: 065
     Dates: start: 20190206
  12. CARBOPLATIN. [Suspect]
     Active Substance: CARBOPLATIN
     Indication: OVARIAN CANCER
     Dosage: DATE OF MOST RECENT DOSE (640 MG) OF CARBOPLATIN PRIOR TO AE ONSET: 29/AUG/2018?TARGET AREA UNDER TH
     Route: 042
     Dates: start: 20180509
  13. CANNABIDIOL [Concomitant]
     Active Substance: CANNABIDIOL
     Route: 065
     Dates: start: 20180703
  14. TYLENOL [Concomitant]
     Active Substance: ACETAMINOPHEN
     Indication: ABDOMINAL PAIN
     Route: 065
     Dates: start: 20190308

REACTIONS (1)
  - Intestinal obstruction [Recovered/Resolved]

NARRATIVE: CASE EVENT DATE: 20190822
